FAERS Safety Report 16322632 (Version 1)
Quarter: 2019Q2

REPORT INFORMATION
  Report Type: Spontaneous
  Country: US (occurrence: US)
  Receive Date: 20190516
  Receipt Date: 20190516
  Transmission Date: 20190711
  Serious: No
  Sender: FDA-Public Use
  Company Number: US-GILEAD-2019-0407537

PATIENT
  Age: 42 Year
  Sex: Female

DRUGS (8)
  1. TRUVADA [Suspect]
     Active Substance: EMTRICITABINE\TENOFOVIR DISOPROXIL FUMARATE
     Indication: EXPOSURE TO COMMUNICABLE DISEASE
     Dosage: 200-300 MG, UNK
     Route: 048
     Dates: start: 201810
  2. PREZISTA [Concomitant]
     Active Substance: DARUNAVIR ETHANOLATE
     Indication: EXPOSURE TO COMMUNICABLE DISEASE
     Dosage: 1200 MG
     Route: 048
     Dates: start: 201810
  3. ISENTRESS [Concomitant]
     Active Substance: RALTEGRAVIR POTASSIUM
     Indication: EXPOSURE TO COMMUNICABLE DISEASE
     Dosage: 800 MG
     Route: 048
     Dates: start: 201810
  4. LISINOPRIL. [Concomitant]
     Active Substance: LISINOPRIL
  5. NAPROXEN. [Concomitant]
     Active Substance: NAPROXEN
  6. AMLODIPINE BESILATE [Concomitant]
     Active Substance: AMLODIPINE BESYLATE
  7. RITONAVIR. [Concomitant]
     Active Substance: RITONAVIR
     Indication: EXPOSURE TO COMMUNICABLE DISEASE
     Dosage: 200 MG
     Route: 048
     Dates: start: 201810
  8. PAROXETINE. [Concomitant]
     Active Substance: PAROXETINE

REACTIONS (1)
  - Product dose omission [Unknown]
